FAERS Safety Report 22347593 (Version 1)
Quarter: 2023Q2

REPORT INFORMATION
  Report Type: Spontaneous
  Country: US (occurrence: US)
  Receive Date: 20230522
  Receipt Date: 20230522
  Transmission Date: 20230722
  Serious: Yes (Other)
  Sender: FDA-Public Use
  Company Number: US-BRISTOL-MYERS SQUIBB COMPANY-2023-071146

PATIENT
  Age: 71 Year
  Weight: 88.3 kg

DRUGS (2)
  1. APIXABAN [Suspect]
     Active Substance: APIXABAN
     Indication: Embolism venous
  2. AFATINIB [Concomitant]
     Active Substance: AFATINIB
     Indication: Lung neoplasm malignant

REACTIONS (1)
  - Haemorrhage [Unknown]
